FAERS Safety Report 8534542-4 (Version None)
Quarter: 2012Q3

REPORT INFORMATION
  Report Type: 
  Country: None (occurrence: None)
  Receive Date: 20120724
  Receipt Date: 20120712
  Transmission Date: 20120928
  Serious: Yes (Hospitalization)
  Sender: FDA-Public Use
  Company Number: CN-BAYER-2012-069734

PATIENT
  Age: 80 Year

DRUGS (2)
  1. ASPIRIN [Suspect]
     Indication: VENOUS THROMBOSIS LIMB
  2. SALVIA MILTIORRHIZA [Suspect]
     Indication: VENOUS THROMBOSIS LIMB

REACTIONS (2)
  - OEDEMA PERIPHERAL [None]
  - MUSCULOSKELETAL STIFFNESS [None]
